FAERS Safety Report 4369959-5 (Version None)
Quarter: 2004Q2

REPORT INFORMATION
  Report Type: 
  Country: None (occurrence: None)
  Receive Date: 20040527
  Receipt Date: 20040512
  Transmission Date: 20050107
  Serious: Yes (Hospitalization)
  Sender: FDA-Public Use
  Company Number: 2004AP02452

PATIENT
  Age: 74 Year
  Sex: Male

DRUGS (6)
  1. IRESSA [Suspect]
     Indication: LUNG ADENOCARCINOMA
     Dosage: 250 MG DAILY PO
     Route: 048
     Dates: start: 20031029, end: 20031217
  2. IRESSA [Suspect]
     Indication: NON-SMALL CELL LUNG CANCER
     Dosage: 250 MG DAILY PO
     Route: 048
     Dates: start: 20031029, end: 20031217
  3. MEIACT [Concomitant]
  4. MEVALOTIN [Concomitant]
  5. FLIVAS [Concomitant]
  6. BUP-4 [Concomitant]

REACTIONS (4)
  - CHEST PAIN [None]
  - HEPATIC FUNCTION ABNORMAL [None]
  - HERPES ZOSTER [None]
  - URINARY TRACT INFECTION [None]
